FAERS Safety Report 19715439 (Version 1)
Quarter: 2021Q3

REPORT INFORMATION
  Report Type: Spontaneous
  Country: GB (occurrence: GB)
  Receive Date: 20210818
  Receipt Date: 20210818
  Transmission Date: 20211014
  Serious: Yes (Disabling, Other)
  Sender: FDA-Public Use
  Company Number: GB-TEVA-2021-GB-1943502

PATIENT
  Age: 38 Year
  Sex: Male
  Weight: 75 kg

DRUGS (2)
  1. VENLAFAXINE HYDROCHLORIDE. [Suspect]
     Active Substance: VENLAFAXINE HYDROCHLORIDE
     Indication: GENERALISED ANXIETY DISORDER
     Dosage: 150 MILLIGRAM DAILY; 150MG M/R OD
     Route: 048
     Dates: start: 20150801
  2. FLUTICASONE PROPIONATE. [Concomitant]
     Active Substance: FLUTICASONE PROPIONATE
     Indication: ILL-DEFINED DISORDER

REACTIONS (1)
  - Chorioretinopathy [Not Recovered/Not Resolved]

NARRATIVE: CASE EVENT DATE: 20210807
